FAERS Safety Report 9843391 (Version 1)
Quarter: 2013Q4

REPORT INFORMATION
  Report Type: Spontaneous
  Country: US (occurrence: None)
  Receive Date: 20131223
  Receipt Date: 20131223
  Transmission Date: 20140711
  Serious: No
  Sender: FDA-Public Use
  Company Number: 219407LEO

PATIENT
  Sex: Female

DRUGS (1)
  1. PICATO, 0.05%, GEL [Suspect]
     Indication: ACTINIC KERATOSIS
     Route: 061
     Dates: start: 20121021, end: 20121022

REACTIONS (6)
  - Blister [None]
  - Erythema [None]
  - Dry skin [None]
  - Chest discomfort [None]
  - Drug administration error [None]
  - Drug administered at inappropriate site [None]
